FAERS Safety Report 12386504 (Version 1)
Quarter: 2016Q2

REPORT INFORMATION
  Report Type: Spontaneous
  Country: US (occurrence: US)
  Receive Date: 20160519
  Receipt Date: 20160519
  Transmission Date: 20160815
  Serious: No
  Sender: FDA-Public Use
  Company Number: US-ASCEND THERAPEUTICS-1052485

PATIENT
  Sex: Female

DRUGS (2)
  1. ESTROGEL [Suspect]
     Active Substance: ESTRADIOL
  2. PROGESTERONE. [Concomitant]
     Active Substance: PROGESTERONE

REACTIONS (2)
  - Abdominal discomfort [Unknown]
  - Nausea [Unknown]
